FAERS Safety Report 17608882 (Version 1)
Quarter: 2020Q2

REPORT INFORMATION
  Report Type: Spontaneous
  Country: US (occurrence: US)
  Receive Date: 20200401
  Receipt Date: 20200401
  Transmission Date: 20200713
  Serious: No
  Sender: FDA-Public Use
  Company Number: US-UCBSA-2017024253

PATIENT
  Age: 58 Year
  Sex: Male
  Weight: 77 kg

DRUGS (4)
  1. METADATE CD [Suspect]
     Active Substance: METHYLPHENIDATE HYDROCHLORIDE
     Indication: PSYCHOMOTOR HYPERACTIVITY
     Dosage: 20 MG, 2X/DAY (BID)
     Route: 048
  2. METHYLPHENIDATE HYDROCHLORIDE. [Suspect]
     Active Substance: METHYLPHENIDATE HYDROCHLORIDE
     Indication: PSYCHOMOTOR HYPERACTIVITY
     Dosage: 20 MG, 2X/DAY (BID)
     Route: 048
     Dates: start: 201703, end: 2017
  3. METHYLPHENIDATE HYDROCHLORIDE. [Suspect]
     Active Substance: METHYLPHENIDATE HYDROCHLORIDE
     Dosage: TRIED CUTTING IN HALF AND SPACING THEM OUT MORE
     Route: 048
     Dates: start: 2017, end: 2017
  4. METHYLPHENIDATE HYDROCHLORIDE. [Suspect]
     Active Substance: METHYLPHENIDATE HYDROCHLORIDE
     Dosage: 40 MG, TOTAL
     Route: 048
     Dates: start: 2017, end: 2017

REACTIONS (4)
  - Wrong technique in product usage process [Unknown]
  - Feeling abnormal [Recovered/Resolved]
  - Drug ineffective [Unknown]
  - Intentional product misuse [Unknown]

NARRATIVE: CASE EVENT DATE: 2017
